FAERS Safety Report 13485637 (Version 11)
Quarter: 2019Q4

REPORT INFORMATION
  Report Type: Spontaneous
  Country: US (occurrence: US)
  Receive Date: 20170425
  Receipt Date: 20191111
  Transmission Date: 20200122
  Serious: No
  Sender: FDA-Public Use
  Company Number: US-PFIZER INC-2017179327

PATIENT
  Age: 52 Year
  Sex: Female
  Weight: 48 kg

DRUGS (8)
  1. LYRICA [Suspect]
     Active Substance: PREGABALIN
     Dosage: 600 MG, DAILY (100 MG, SIX TIMES A DAY)
     Route: 048
  2. LYRICA [Suspect]
     Active Substance: PREGABALIN
     Dosage: 600 MG, DAILY (100 MG IN THE MORNING, 100 MG AT NIGHT, 100 MG AT BEDTIME)
     Route: 048
     Dates: start: 20190314
  3. LYRICA [Suspect]
     Active Substance: PREGABALIN
     Dosage: 200 MG, DAILY
     Route: 048
  4. LYRICA [Suspect]
     Active Substance: PREGABALIN
     Dosage: 600 MG, DAILY (100 MG IN THE MORNING, 100 MG AT NIGHT, 100 MG AT BEDTIME)
     Route: 048
     Dates: start: 20190912
  5. XANAX [Concomitant]
     Active Substance: ALPRAZOLAM
     Indication: ANXIETY
     Dosage: 0.25 MG, AS NEEDED
     Route: 048
  6. LYRICA [Suspect]
     Active Substance: PREGABALIN
     Indication: FIBROMYALGIA
     Dosage: 600 MG, DAILY (100 MG IN THE MORNING, 100 MG AT NIGHT, 100 MG AT BEDTIME)
     Route: 048
     Dates: start: 2009
  7. LYRICA [Suspect]
     Active Substance: PREGABALIN
     Dosage: 100 MG, 3X/DAY
     Route: 048
     Dates: end: 20190630
  8. ENTOCORT [Concomitant]
     Active Substance: BUDESONIDE
     Indication: COLITIS
     Dosage: 3 MG, 3X/DAY
     Route: 048

REACTIONS (6)
  - Feeding disorder [Unknown]
  - Intentional product use issue [Unknown]
  - Off label use [Unknown]
  - Malaise [Unknown]
  - Fatigue [Unknown]
  - Product use issue [Unknown]
